FAERS Safety Report 9618781 (Version 3)
Quarter: 2013Q4

REPORT INFORMATION
  Report Type: Spontaneous
  Country: GB (occurrence: GB)
  Receive Date: 20131014
  Receipt Date: 20131118
  Transmission Date: 20140711
  Serious: Yes (Hospitalization, Other)
  Sender: FDA-Public Use
  Company Number: PHFR2005GB00617

PATIENT
  Age: 24 Year
  Sex: Male

DRUGS (3)
  1. CLOZARIL [Suspect]
     Indication: MENTAL DISORDER
     Dosage: 125 MG, QD
     Route: 048
     Dates: start: 20050118
  2. PROPRANOLOL [Concomitant]
     Indication: ANXIETY
     Dosage: 40 MG, QD
  3. BUSPIRONE [Concomitant]
     Indication: MENTAL DISORDER
     Dosage: 15 MG, QD
     Route: 048

REACTIONS (7)
  - Tachycardia [Recovering/Resolving]
  - Electrocardiogram T wave abnormal [Recovering/Resolving]
  - Vomiting [Recovering/Resolving]
  - Sinus tachycardia [Unknown]
  - Emotional disorder [Unknown]
  - Mental disorder [Unknown]
  - Arrhythmia [Unknown]
